FAERS Safety Report 9294316 (Version 6)
Quarter: 2015Q2

REPORT INFORMATION
  Report Type: Spontaneous
  Country: US (occurrence: US)
  Receive Date: 20130516
  Receipt Date: 20150514
  Transmission Date: 20150821
  Serious: Yes (Hospitalization, Disabling)
  Sender: FDA-Public Use
  Company Number: US-009507513-1305USA009301

PATIENT
  Sex: Male
  Weight: 81.18 kg

DRUGS (5)
  1. PROPECIA [Suspect]
     Active Substance: FINASTERIDE
     Indication: ALOPECIA
     Dosage: 1 MG, QD
     Route: 048
     Dates: start: 19990824, end: 20070530
  2. FINASTERIDE. [Suspect]
     Active Substance: FINASTERIDE
     Indication: ALOPECIA
     Dosage: 5 MG, 1/4 TABLET DAILY
     Route: 048
     Dates: start: 20070907, end: 20120630
  3. FINASTERIDE. [Suspect]
     Active Substance: FINASTERIDE
     Dosage: 5 MG, QD
     Route: 048
     Dates: start: 20140414
  4. FINASTERIDE. [Suspect]
     Active Substance: FINASTERIDE
     Indication: ANDROGENETIC ALOPECIA
     Dosage: 5 MG, UNK
     Route: 048
     Dates: start: 20120629, end: 2013
  5. FINASTERIDE. [Suspect]
     Active Substance: FINASTERIDE
     Dosage: UNK
     Route: 048
     Dates: start: 200801

REACTIONS (28)
  - Adverse event [Unknown]
  - Panic disorder [Unknown]
  - Osteoarthritis [Unknown]
  - Cholelithiasis obstructive [Unknown]
  - Endoscopic retrograde cholangiopancreatography [Unknown]
  - Varicose vein [Unknown]
  - Drug administration error [Unknown]
  - Muscle spasms [Unknown]
  - Anorgasmia [Unknown]
  - Depression [Not Recovered/Not Resolved]
  - Varicose vein operation [Unknown]
  - Insomnia [Not Recovered/Not Resolved]
  - Wrong technique in drug usage process [Unknown]
  - Intervertebral disc degeneration [Unknown]
  - Gallbladder disorder [Unknown]
  - Intervertebral disc protrusion [Unknown]
  - Anxiety [Not Recovered/Not Resolved]
  - Back injury [Unknown]
  - Back pain [Unknown]
  - Erectile dysfunction [Not Recovered/Not Resolved]
  - Dyspepsia [Unknown]
  - Fall [Unknown]
  - Nocturia [Unknown]
  - Sexual dysfunction [Not Recovered/Not Resolved]
  - Arthritis [Unknown]
  - Pollakiuria [Unknown]
  - Muscle strain [Unknown]
  - Libido decreased [Unknown]

NARRATIVE: CASE EVENT DATE: 1999
